FAERS Safety Report 9499970 (Version 2)
Quarter: 2013Q4

REPORT INFORMATION
  Report Type: Spontaneous
  Country: US (occurrence: US)
  Receive Date: 20130905
  Receipt Date: 20131017
  Transmission Date: 20140711
  Serious: No
  Sender: FDA-Public Use
  Company Number: US-PFIZER INC-2013254491

PATIENT
  Sex: Female

DRUGS (1)
  1. ADVIL FAST ACTING [Suspect]
     Dosage: 2 TABLET, ONCE A DAY
     Dates: start: 20130902

REACTIONS (1)
  - Throat irritation [Not Recovered/Not Resolved]
